FAERS Safety Report 8263917-6 (Version None)
Quarter: 2012Q2

REPORT INFORMATION
  Report Type: 
  Country: None (occurrence: None)
  Receive Date: 20120406
  Receipt Date: 20120328
  Transmission Date: 20120825
  Serious: Yes (Other)
  Sender: FDA-Public Use
  Company Number: ES-BRISTOL-MYERS SQUIBB COMPANY-16495483

PATIENT
  Sex: Male

DRUGS (4)
  1. FLUOROURACIL [Concomitant]
  2. ERBITUX [Suspect]
     Indication: COLON CANCER STAGE IV
     Dosage: DOSE REDUCED START:25JAN2011-UNK
  3. OXALIPLATIN [Concomitant]
  4. LEUCOVORIN CALCIUM [Concomitant]

REACTIONS (1)
  - NECROLYTIC MIGRATORY ERYTHEMA [None]
